FAERS Safety Report 7249810-6 (Version None)
Quarter: 2011Q1

REPORT INFORMATION
  Report Type: 
  Country: None (occurrence: None)
  Receive Date: 20110128
  Receipt Date: 20100316
  Transmission Date: 20110831
  Serious: No
  Sender: FDA-Public Use
  Company Number: A0855734A

PATIENT
  Age: 48 Year
  Sex: Male

DRUGS (2)
  1. BLOOD PRESSURE MEDICATION [Concomitant]
     Dates: start: 20100101
  2. BUPROPION HYDROCHLORIDE [Suspect]
     Indication: ATTENTION DEFICIT/HYPERACTIVITY DISORDER
     Dosage: 300MGD PER DAY
     Route: 048
     Dates: start: 20070101, end: 20070101

REACTIONS (4)
  - FEELING JITTERY [None]
  - INSOMNIA [None]
  - DISTURBANCE IN ATTENTION [None]
  - THINKING ABNORMAL [None]
